FAERS Safety Report 20490558 (Version 1)
Quarter: 2022Q1

REPORT INFORMATION
  Report Type: Spontaneous
  Country: US (occurrence: None)
  Receive Date: 20220217
  Receipt Date: 20220217
  Transmission Date: 20220423
  Serious: No
  Sender: FDA-Public Use
  Company Number: None

PATIENT
  Age: 67 Year
  Sex: Female

DRUGS (1)
  1. VERZENIO [Suspect]
     Active Substance: ABEMACICLIB
     Dosage: FREQUENCY : TWICE A DAY;?
     Route: 048
     Dates: start: 202110

REACTIONS (16)
  - Nasopharyngitis [None]
  - Influenza [None]
  - Hot flush [None]
  - Fatigue [None]
  - Oedema [None]
  - Epistaxis [None]
  - Urinary incontinence [None]
  - Myalgia [None]
  - Headache [None]
  - Herpes simplex [None]
  - Dry skin [None]
  - Skin fissures [None]
  - Chills [None]
  - Contusion [None]
  - Madarosis [None]
  - Madarosis [None]

NARRATIVE: CASE EVENT DATE: 20220130
